FAERS Safety Report 8150224-5 (Version None)
Quarter: 2012Q1

REPORT INFORMATION
  Report Type: 
  Country: None (occurrence: None)
  Receive Date: 20120220
  Receipt Date: 20120215
  Transmission Date: 20120608
  Serious: No
  Sender: FDA-Public Use
  Company Number: US-PFIZER INC-2012041327

PATIENT
  Sex: Female
  Weight: 71.2 kg

DRUGS (2)
  1. ACETAMINOPHEN [Concomitant]
     Indication: ARTHRALGIA
     Dosage: UNK
  2. LYRICA [Suspect]
     Indication: FIBROMYALGIA
     Dosage: 100 MG, 1X/DAY
     Route: 048
     Dates: start: 20111201

REACTIONS (6)
  - PRURITUS [None]
  - ERYTHEMA [None]
  - LOCAL SWELLING [None]
  - MUSCLE TIGHTNESS [None]
  - SOMNOLENCE [None]
  - FATIGUE [None]
